FAERS Safety Report 23113240 (Version 1)
Quarter: 2023Q4

REPORT INFORMATION
  Report Type: Spontaneous
  Country: ES (occurrence: ES)
  Receive Date: 20231027
  Receipt Date: 20231027
  Transmission Date: 20240109
  Serious: Yes (Other)
  Sender: FDA-Public Use
  Company Number: None

PATIENT
  Age: 39 Year
  Sex: Male

DRUGS (7)
  1. METAMIZOL SODIUM [Suspect]
     Active Substance: METAMIZOL SODIUM
     Indication: Toothache
     Route: 048
     Dates: start: 20230922, end: 20230929
  2. METHADONE HYDROCHLORIDE [Suspect]
     Active Substance: METHADONE HYDROCHLORIDE
     Indication: Drug dependence
     Route: 048
     Dates: start: 20230512
  3. ETUMINA 40 MG COMPRIMIDOS  , 30 comprimidos [Concomitant]
     Route: 048
     Dates: start: 20230509
  4. LYRICA 150 MG CAPSULAS DURAS, 56 c?psulas [Concomitant]
     Route: 048
     Dates: start: 20230509
  5. BENERVA 300 mg COMPRIMIDOS RECUBIERTOS CON PELICULA , 20 comprimidos [Concomitant]
     Route: 048
     Dates: start: 20220701
  6. LYRICA 75 MG CAPSULAS DURAS, 56 c?psulas [Concomitant]
     Route: 048
     Dates: start: 20230509
  7. ZOLPIDEM NORMON 10 mg COMPRIMIDOS RECUBIERTOS CON PELICULA EFG , 30 co [Concomitant]
     Route: 048
     Dates: start: 20230509

REACTIONS (1)
  - Withdrawal syndrome [Recovered/Resolved]

NARRATIVE: CASE EVENT DATE: 20230927
